FAERS Safety Report 19911753 (Version 1)
Quarter: 2021Q4

REPORT INFORMATION
  Report Type: Spontaneous
  Country: US (occurrence: US)
  Receive Date: 20211002
  Receipt Date: 20211002
  Transmission Date: 20220303
  Serious: No
  Sender: FDA-Public Use
  Company Number: None

PATIENT
  Age: 67 Year
  Sex: Male
  Weight: 103.5 kg

DRUGS (1)
  1. LOTRIMIN [Suspect]
     Active Substance: CLOTRIMAZOLE
     Indication: Tinea cruris
     Route: 061
     Dates: start: 20210115, end: 20210915

REACTIONS (4)
  - Application site pain [None]
  - Application site erythema [None]
  - Application site warmth [None]
  - Product formulation issue [None]

NARRATIVE: CASE EVENT DATE: 20210801
